FAERS Safety Report 10191386 (Version 1)
Quarter: 2014Q2

REPORT INFORMATION
  Report Type: Spontaneous
  Country: FR (occurrence: FR)
  Receive Date: 20140523
  Receipt Date: 20140523
  Transmission Date: 20141212
  Serious: Yes (Life-Threatening, Hospitalization, Other)
  Sender: FDA-Public Use
  Company Number: FR-PFIZER INC-2014135494

PATIENT
  Age: 60 Year
  Sex: Female

DRUGS (5)
  1. XANAX [Suspect]
     Indication: BIPOLAR DISORDER
     Route: 048
  2. TERALITHE [Suspect]
     Indication: BIPOLAR DISORDER
     Route: 048
  3. GLUCOR [Concomitant]
     Indication: TYPE 2 DIABETES MELLITUS
     Dosage: UNK
     Route: 048
  4. ANAFRANIL [Concomitant]
     Indication: BIPOLAR DISORDER
     Dosage: UNK
     Route: 048
  5. ARTANE [Concomitant]
     Indication: PARKINSONISM
     Dosage: UNK
     Route: 048

REACTIONS (13)
  - Coma [Recovered/Resolved]
  - Renal failure [Recovered/Resolved]
  - Hepatocellular injury [Recovered/Resolved]
  - Suicide attempt [Unknown]
  - Intentional overdose [Unknown]
  - Rhabdomyolysis [Unknown]
  - Toxicity to various agents [Recovered/Resolved]
  - Nephrogenic diabetes insipidus [Unknown]
  - Central nervous system lesion [Unknown]
  - Polydipsia [Unknown]
  - Ischaemia [Unknown]
  - Confusional state [Unknown]
  - Neuropathy peripheral [Unknown]
